FAERS Safety Report 24881994 (Version 1)
Quarter: 2025Q1

REPORT INFORMATION
  Report Type: Report from Study
  Country: AU (occurrence: AU)
  Receive Date: 20250124
  Receipt Date: 20250124
  Transmission Date: 20250408
  Serious: Yes (Death, Life-Threatening, Hospitalization, Other)
  Sender: JOHNSON AND JOHNSON
  Company Number: US-JNJFOC-20240963667

PATIENT
  Age: 67 Year
  Sex: Male
  Weight: 107 kg

DRUGS (2)
  1. DARZALEX [Suspect]
     Active Substance: DARATUMUMAB
     Indication: Plasma cell myeloma
     Route: 058
     Dates: start: 20230529, end: 20231106
  2. ELRANATAMAB [Suspect]
     Active Substance: ELRANATAMAB
     Indication: Plasma cell myeloma
     Dosage: MOST RECENT DOSE OF ELRANTAMAB WAS ADMINISTRATED ON 26/FEB/2024
     Route: 058
     Dates: start: 20230529

REACTIONS (7)
  - Encephalitis brain stem [Fatal]
  - Ophthalmoplegia [Unknown]
  - Bronchiectasis [Unknown]
  - Serratia infection [Unknown]
  - Cerebrovascular accident [Unknown]
  - Lower respiratory tract infection [Unknown]
  - Fall [Unknown]

NARRATIVE: CASE EVENT DATE: 20240417
